FAERS Safety Report 18575010 (Version 2)
Quarter: 2021Q3

REPORT INFORMATION
  Report Type: Spontaneous
  Country: PT (occurrence: PT)
  Receive Date: 20201203
  Receipt Date: 20210802
  Transmission Date: 20211014
  Serious: Yes (Hospitalization, Other)
  Sender: FDA-Public Use
  Company Number: PT-MYLANLABS-2020M1090383

PATIENT
  Age: 53 Year
  Sex: Male

DRUGS (1)
  1. CAPTOPRIL. [Suspect]
     Active Substance: CAPTOPRIL
     Indication: HYPERTENSION
     Dosage: UNK
     Route: 065

REACTIONS (5)
  - Intentional product use issue [Unknown]
  - Blood catecholamines increased [Unknown]
  - Vanillyl mandelic acid urine increased [Unknown]
  - Blood creatinine abnormal [Recovered/Resolved]
  - Blood creatinine increased [Not Recovered/Not Resolved]
